FAERS Safety Report 20499625 (Version 1)
Quarter: 2022Q1

REPORT INFORMATION
  Report Type: Spontaneous
  Country: JP (occurrence: JP)
  Receive Date: 20220222
  Receipt Date: 20220222
  Transmission Date: 20220423
  Serious: Yes (Other)
  Sender: FDA-Public Use
  Company Number: JP-JNJFOC-20220238703

PATIENT
  Age: 86 Year
  Sex: Male

DRUGS (2)
  1. ZYTIGA [Suspect]
     Active Substance: ABIRATERONE ACETATE
     Indication: Prostate cancer
     Dosage: DOSE UNKNOWN
     Route: 048
     Dates: start: 20190930
  2. DEGARELIX [Suspect]
     Active Substance: DEGARELIX
     Indication: Prostate cancer
     Dosage: DOSE UNKNOWN
     Route: 058

REACTIONS (3)
  - Urinary retention [Unknown]
  - Haematuria [Unknown]
  - Neuroendocrine tumour [Unknown]

NARRATIVE: CASE EVENT DATE: 20191216
